FAERS Safety Report 22245814 (Version 1)
Quarter: 2023Q2

REPORT INFORMATION
  Report Type: Spontaneous
  Country: FR (occurrence: FR)
  Receive Date: 20230424
  Receipt Date: 20230424
  Transmission Date: 20230721
  Serious: Yes (Hospitalization)
  Sender: FDA-Public Use
  Company Number: None

PATIENT
  Age: 15 Year
  Sex: Male
  Weight: 55 kg

DRUGS (8)
  1. ALMOTRIPTAN [Suspect]
     Active Substance: ALMOTRIPTAN
     Indication: Product used for unknown indication
     Dosage: 37.5 MILLIGRAM, 1 TOTAL
     Route: 048
     Dates: start: 20230305, end: 20230305
  2. IBUPROFEN [Suspect]
     Active Substance: IBUPROFEN
     Indication: Migraine
     Dosage: 2 GRAM, 1 TOTAL
     Route: 048
     Dates: start: 20230305, end: 20230305
  3. ADVIL [Suspect]
     Active Substance: IBUPROFEN
     Indication: Migraine
     Dosage: 1 GRAM, 1 TOTAL
     Route: 048
     Dates: start: 20230305, end: 20230305
  4. IBUPROFEN [Suspect]
     Active Substance: IBUPROFEN
     Indication: Migraine
     Dosage: 4 GRAM, 1 TOTAL
     Route: 048
     Dates: start: 20230305, end: 20230305
  5. PHLOROGLUCINOL [Suspect]
     Active Substance: PHLOROGLUCINOL
     Indication: Product used for unknown indication
     Dosage: 640 MILLIGRAM, 1 TOTAL
     Route: 048
     Dates: start: 20230305, end: 20230305
  6. IBUPROFEN [Suspect]
     Active Substance: IBUPROFEN
     Indication: Migraine
     Dosage: 1 GRAM, 1 TOTAL
     Route: 048
     Dates: start: 20230305, end: 20230305
  7. DOLIPRANE [Suspect]
     Active Substance: ACETAMINOPHEN
     Indication: Migraine
     Dosage: 12 GRAM, 1 TOTAL
     Route: 048
     Dates: start: 20230305, end: 20230305
  8. KETOPROFEN [Suspect]
     Active Substance: KETOPROFEN
     Indication: Product used for unknown indication
     Dosage: 1050 MILLIGRAM, 1 TOTAL
     Route: 048
     Dates: start: 20230305, end: 20230305

REACTIONS (6)
  - Prerenal failure [Recovering/Resolving]
  - Vomiting [Recovered/Resolved]
  - Abdominal pain [Recovered/Resolved]
  - Product use issue [Recovered/Resolved]
  - Intentional product misuse [Recovered/Resolved]
  - Product use in unapproved indication [Recovered/Resolved]

NARRATIVE: CASE EVENT DATE: 20230305
